FAERS Safety Report 5425117-4 (Version None)
Quarter: 2007Q3

REPORT INFORMATION
  Report Type: 
  Country: None (occurrence: None)
  Receive Date: 20070824
  Receipt Date: 20070814
  Transmission Date: 20080115
  Serious: Yes (Hospitalization)
  Sender: FDA-Public Use
  Company Number: CA-JNJFOC-20070803258

PATIENT
  Age: 46 Year
  Sex: Female

DRUGS (5)
  1. ELMIRON [Suspect]
     Indication: CYSTITIS INTERSTITIAL
     Route: 048
  2. PREMARIN [Concomitant]
     Route: 048
  3. CALCIUM [Concomitant]
     Route: 065
  4. PAXIL [Concomitant]
     Route: 065
  5. VITAMIN D [Concomitant]
     Route: 065

REACTIONS (4)
  - FATIGUE [None]
  - HEPATIC ENZYME INCREASED [None]
  - HYPOTENSION [None]
  - PYREXIA [None]
